FAERS Safety Report 7431869-4 (Version None)
Quarter: 2011Q2

REPORT INFORMATION
  Report Type: 
  Country: None (occurrence: None)
  Receive Date: 20110422
  Receipt Date: 20110419
  Transmission Date: 20111010
  Serious: Yes (Hospitalization)
  Sender: FDA-Public Use
  Company Number: GB-PFIZER INC-2011086024

PATIENT
  Age: 21 Year
  Sex: Female

DRUGS (5)
  1. GEMEPROST [Suspect]
     Dosage: 1 MG, 10 DOSES PER DAY
     Route: 067
     Dates: start: 20100628
  2. MIFEGYNE [Suspect]
     Dosage: 600 MG, UNK
     Route: 048
     Dates: start: 20100626
  3. MIFEGYNE [Suspect]
     Indication: ABORTION INDUCED
     Dosage: 200 MG, 1X/DAY
     Route: 048
     Dates: start: 20100621, end: 20100621
  4. VERAPAMIL [Concomitant]
     Route: 048
  5. MISOPROSTOL [Suspect]
     Indication: ABORTION INDUCED
     Dosage: 4000 UG, UNK
     Route: 067
     Dates: start: 20100623, end: 20100623

REACTIONS (5)
  - INDUCED ABORTION FAILED [None]
  - INCORRECT ROUTE OF DRUG ADMINISTRATION [None]
  - INAPPROPRIATE SCHEDULE OF DRUG ADMINISTRATION [None]
  - INCORRECT DOSE ADMINISTERED [None]
  - DRUG INEFFECTIVE FOR UNAPPROVED INDICATION [None]
